FAERS Safety Report 5373189-8 (Version None)
Quarter: 2007Q2

REPORT INFORMATION
  Report Type: 
  Country: None (occurrence: None)
  Receive Date: 20070626
  Receipt Date: 20070613
  Transmission Date: 20071010
  Serious: Yes (Hospitalization)
  Sender: FDA-Public Use
  Company Number: MEDI-0005820

PATIENT
  Age: 65 Year
  Sex: Female
  Weight: 83.9154 kg

DRUGS (15)
  1. ETHYOL [Suspect]
     Indication: NEOPLASM MALIGNANT
     Dosage: 500 GM, 5 IN 5 D, SUBCUTANEOUS
     Route: 058
     Dates: start: 20070515, end: 20070531
  2. ETHYOL [Suspect]
  3. ETHYOL [Suspect]
  4. ETHYOL [Suspect]
  5. RADIATION THERAPY [Concomitant]
  6. PRINIVIL [Concomitant]
  7. HYDROCHLOROTHIAZIDE [Concomitant]
  8. ZOCOR [Concomitant]
  9. COUMADIN [Concomitant]
  10. NORVASC [Concomitant]
  11. KYTRIL [Concomitant]
  12. HYDROMORPHONE HCL [Concomitant]
  13. METOPROLOL TARTRATE [Concomitant]
  14. FISH OIL                  SUPPLEMENT             (FISH OIL) [Concomitant]
  15. FOLIC ACID [Concomitant]

REACTIONS (5)
  - ATRIAL FIBRILLATION [None]
  - DRUG HYPERSENSITIVITY [None]
  - PHARMACEUTICAL PRODUCT COMPLAINT [None]
  - RADIATION MUCOSITIS [None]
  - URINARY TRACT INFECTION [None]
